FAERS Safety Report 19563159 (Version 3)
Quarter: 2021Q3

REPORT INFORMATION
  Report Type: Spontaneous
  Country: NL (occurrence: GB)
  Receive Date: 20210716
  Receipt Date: 20210920
  Transmission Date: 20211014
  Serious: Yes (Other)
  Sender: FDA-Public Use
  Company Number: GB-TEVA-2021-GB-1931965

PATIENT
  Age: 78 Year
  Sex: Female
  Weight: 42 kg

DRUGS (2)
  1. PACLITAXEL LIPOSOME [Suspect]
     Active Substance: PACLITAXEL
     Indication: OESOPHAGEAL ADENOCARCINOMA
     Route: 065
     Dates: start: 201910, end: 201911
  2. CARBOPLATIN. [Suspect]
     Active Substance: CARBOPLATIN
     Indication: OESOPHAGEAL ADENOCARCINOMA
     Dosage: UNK
     Route: 065
     Dates: start: 201910, end: 201911

REACTIONS (7)
  - Metastatic neoplasm [Unknown]
  - Pneumonia aspiration [Unknown]
  - Electrolyte imbalance [Unknown]
  - Neutropenia [Unknown]
  - Neuropathy peripheral [Unknown]
  - Off label use [Unknown]
  - Intestinal ischaemia [Unknown]

NARRATIVE: CASE EVENT DATE: 202104
